FAERS Safety Report 7586621-6 (Version None)
Quarter: 2011Q3

REPORT INFORMATION
  Report Type: 
  Country: None (occurrence: None)
  Receive Date: 20110701
  Receipt Date: 20110621
  Transmission Date: 20111222
  Serious: Yes (Other)
  Sender: FDA-Public Use
  Company Number: SE-MYLANLABS-2011S1012828

PATIENT
  Age: 15 Year
  Sex: Male

DRUGS (2)
  1. ZADITEN [Concomitant]
     Indication: PRODUCT USED FOR UNKNOWN INDICATION
  2. CETIRIZINE HCL [Suspect]
     Indication: HYPERSENSITIVITY
     Dates: end: 20110617

REACTIONS (3)
  - VISION BLURRED [None]
  - EYE MOVEMENT DISORDER [None]
  - SYNCOPE [None]
